FAERS Safety Report 17492768 (Version 2)
Quarter: 2022Q3

REPORT INFORMATION
  Report Type: Spontaneous
  Country: GB (occurrence: GB)
  Receive Date: 20200304
  Receipt Date: 20220825
  Transmission Date: 20221027
  Serious: Yes (Other)
  Sender: FDA-Public Use
  Company Number: None

PATIENT
  Age: 47 Year
  Sex: Male

DRUGS (12)
  1. FLUOROURACIL [Suspect]
     Active Substance: FLUOROURACIL
     Indication: Colon cancer
     Dosage: 4800MG + 800MG FOR A TOTAL OF 12 CYCLES
     Route: 042
     Dates: start: 20190102
  2. IRINOTECAN HYDROCHLORIDE [Suspect]
     Active Substance: IRINOTECAN HYDROCHLORIDE
     Indication: Colon cancer
     Dosage: FOR A TOTAL OF 12 CYCLES
     Route: 042
     Dates: start: 20190102
  3. LEUCOVORIN [Suspect]
     Active Substance: LEUCOVORIN
     Indication: Colon cancer
     Route: 042
     Dates: start: 20190102
  4. AVASTIN [Suspect]
     Active Substance: BEVACIZUMAB
     Indication: Colon cancer
     Dosage: 580MG (7.5MG/KG) INCREASED FROM 5MG/KG. FOR A TOTAL OF 12 CYCLES
     Route: 042
     Dates: start: 20190102
  5. APREPITANT [Concomitant]
     Active Substance: APREPITANT
  6. PEGFILGRASTIM [Concomitant]
     Active Substance: PEGFILGRASTIM
  7. DEXAMETHASONE [Concomitant]
     Active Substance: DEXAMETHASONE
  8. ONDANSETRON [Concomitant]
     Active Substance: ONDANSETRON
  9. ZOPICLONE [Concomitant]
     Active Substance: ZOPICLONE
  10. ATROPINE [Concomitant]
     Active Substance: ATROPINE
  11. CHLORPHENIRAMINE MALEATE [Concomitant]
     Active Substance: CHLORPHENIRAMINE MALEATE
  12. LEUCOVORIN [Concomitant]
     Active Substance: LEUCOVORIN
     Route: 065

REACTIONS (15)
  - Proteinuria [Unknown]
  - Mouth ulceration [Unknown]
  - Stomatitis [Unknown]
  - Alopecia [Not Recovered/Not Resolved]
  - Haematochezia [Unknown]
  - Neuropathy peripheral [Not Recovered/Not Resolved]
  - Haemorrhoids [Unknown]
  - Insomnia [Unknown]
  - Headache [Unknown]
  - Sleep disorder [Unknown]
  - Dry skin [Unknown]
  - Constipation [Unknown]
  - Nausea [Not Recovered/Not Resolved]
  - Diarrhoea [Not Recovered/Not Resolved]
  - Fatigue [Not Recovered/Not Resolved]
